FAERS Safety Report 19580073 (Version 1)
Quarter: 2021Q3

REPORT INFORMATION
  Report Type: Spontaneous
  Country: IT (occurrence: IT)
  Receive Date: 20210720
  Receipt Date: 20210720
  Transmission Date: 20211014
  Serious: Yes (Other)
  Sender: FDA-Public Use
  Company Number: IT-AUROBINDO-AUR-APL-2021-030436

PATIENT
  Age: 19 Year
  Sex: Male
  Weight: 96 kg

DRUGS (2)
  1. ANASTROZOLE. [Suspect]
     Active Substance: ANASTROZOLE
     Indication: PITUITARY TUMOUR BENIGN
     Dosage: 1 MILLIGRAM, ONCE A DAY
     Route: 065
  2. CABERGOLINE. [Concomitant]
     Active Substance: CABERGOLINE
     Indication: PITUITARY TUMOUR BENIGN
     Dosage: 3.5 MILLIGRAM, EVERY WEEK
     Route: 065

REACTIONS (3)
  - Off label use [Unknown]
  - Waist circumference increased [Unknown]
  - Weight increased [Unknown]
